FAERS Safety Report 13115646 (Version 1)
Quarter: 2017Q1

REPORT INFORMATION
  Report Type: Report from Study
  Country: ZA (occurrence: ZA)
  Receive Date: 20170114
  Receipt Date: 20170114
  Transmission Date: 20170428
  Serious: Yes (Death, Hospitalization, Other)
  Sender: FDA-Public Use
  Company Number: ZA-AMGEN-ZAFSL2017006005

PATIENT
  Age: 88 Year
  Sex: Female

DRUGS (1)
  1. ARANESP [Suspect]
     Active Substance: DARBEPOETIN ALFA
     Indication: RENAL FAILURE
     Dosage: 30 MG, Q2WK
     Route: 065
     Dates: start: 201511, end: 201612

REACTIONS (3)
  - Renal failure [Fatal]
  - Cardiac failure congestive [Fatal]
  - Cerebrovascular accident [Fatal]
